FAERS Safety Report 8756859 (Version 1)
Quarter: 2012Q4

REPORT INFORMATION
  Report Type: 
  Country: CA (occurrence: CA)
  Receive Date: 20120828
  Receipt Date: 20120828
  Transmission Date: 20130627
  Serious: Yes (Death)
  Sender: FDA-Public Use
  Company Number: CA-SANOFI-AVENTIS-2012SA061029

PATIENT
  Age: 48 Year
  Sex: Male

DRUGS (1)
  1. RILUTEK [Suspect]
     Indication: AMYOTROPHIC LATERAL SCLEROSIS
     Route: 065
     Dates: start: 201009, end: 201206

REACTIONS (1)
  - Death [Fatal]
